FAERS Safety Report 24274114 (Version 2)
Quarter: 2025Q1

REPORT INFORMATION
  Report Type: Report from Study
  Country: MY (occurrence: MY)
  Receive Date: 20240902
  Receipt Date: 20250117
  Transmission Date: 20250409
  Serious: Yes (Death, Other)
  Sender: EXELIXIS
  Company Number: MY-IPSEN Group, Research and Development-2024-06476

PATIENT
  Age: 69 Year
  Sex: Female
  Weight: 36 kg

DRUGS (2)
  1. CABOMETYX [Suspect]
     Active Substance: CABOZANTINIB S-MALATE
     Indication: Renal cell carcinoma
     Dosage: 20 MG ALTERNATIVE DAYS
     Route: 048
     Dates: start: 202403, end: 202408
  2. CABOMETYX [Suspect]
     Active Substance: CABOZANTINIB S-MALATE
     Dosage: 20 MG, QD
     Route: 048
     Dates: end: 20241216

REACTIONS (7)
  - Wound [Unknown]
  - Decreased appetite [Unknown]
  - Dyspnoea [Unknown]
  - Vomiting [Unknown]
  - Death [Fatal]
  - Wound [Recovering/Resolving]
  - Off label use [Unknown]

NARRATIVE: CASE EVENT DATE: 20240301
